FAERS Safety Report 7273770-5 (Version None)
Quarter: 2011Q1

REPORT INFORMATION
  Report Type: 
  Country: None (occurrence: None)
  Receive Date: 20110203
  Receipt Date: 20110121
  Transmission Date: 20110831
  Serious: Yes (Hospitalization)
  Sender: FDA-Public Use
  Company Number: US-MYLANLABS-2011S1001594

PATIENT
  Age: 16 Year
  Sex: Male

DRUGS (5)
  1. LITHIUM [Concomitant]
     Indication: BIPOLAR DISORDER
     Dosage: TITRATED ACCORDING TO BLOOD DRUG LEVELS
     Route: 065
  2. CAFFEINE [Interacting]
     Dosage: APPROXIMATELY 1.6G
     Route: 065
  3. ARIPIPRAZOLE [Interacting]
     Indication: BIPOLAR DISORDER
     Dosage: INCREASED TO 10MG DAILY 4 WEEKS PRIOR TO PRESENTATION
     Route: 065
  4. FLUOXETINE [Suspect]
     Indication: BIPOLAR DISORDER
     Route: 065
  5. ARIPIPRAZOLE [Interacting]
     Dosage: INCREASED FROM 5MG DAILY 4 WEEKS PRIOR TO PRESENTATION
     Route: 065

REACTIONS (4)
  - RENAL IMPAIRMENT [None]
  - RHABDOMYOLYSIS [None]
  - DRUG INTERACTION [None]
  - DRUG RASH WITH EOSINOPHILIA AND SYSTEMIC SYMPTOMS [None]
